FAERS Safety Report 7888508-8 (Version None)
Quarter: 2011Q4

REPORT INFORMATION
  Report Type: 
  Country: None (occurrence: None)
  Receive Date: 20111101
  Receipt Date: 20111018
  Transmission Date: 20120403
  Serious: Yes (Death, Disabling, Other)
  Sender: FDA-Public Use
  Company Number: 2011MA013466

PATIENT
  Age: 59 Year

DRUGS (8)
  1. ANTHRACYCLINE (NO PREF. NAME) [Suspect]
     Indication: BREAST CANCER METASTATIC
  2. CAPECITABINE [Suspect]
     Indication: BREAST CANCER METASTATIC
  3. TRASTUZUMAB (TRASTUZUMAB) [Suspect]
     Indication: BREAST CANCER METASTATIC
  4. 5-HT3 (NO PREF. NAME) [Suspect]
     Indication: BREAST CANCER METASTATIC
  5. VINORELBINE [Suspect]
     Indication: BREAST CANCER METASTATIC
  6. IRINOTECAN HYDROCHLORIDE [Suspect]
     Indication: BREAST CANCER METASTATIC
     Dosage: 100 MG/M2
  7. DOCETAXEL [Suspect]
     Indication: BREAST CANCER METASTATIC
  8. PACLITAXEL [Suspect]
     Indication: BREAST CANCER METASTATIC

REACTIONS (3)
  - NEUTROPENIA [None]
  - SEPSIS [None]
  - TOXICITY TO VARIOUS AGENTS [None]
